FAERS Safety Report 8540738-8 (Version None)
Quarter: 2012Q2

REPORT INFORMATION
  Report Type: 
  Country: None (occurrence: None)
  Receive Date: 20120416
  Receipt Date: 20080727
  Transmission Date: 20120825
  Serious: Yes (Other)
  Sender: FDA-Public Use
  Company Number: PHEH2008US06743

PATIENT
  Sex: Male

DRUGS (1)
  1. DIOVAN [Suspect]
     Dosage: 80 MG

REACTIONS (4)
  - HYPOTENSION [None]
  - ABDOMINAL DISCOMFORT [None]
  - PRESYNCOPE [None]
  - HEADACHE [None]
